FAERS Safety Report 8302469-9 (Version None)
Quarter: 2012Q1

REPORT INFORMATION
  Report Type: 
  Country: None (occurrence: None)
  Receive Date: 20120326
  Receipt Date: 20120119
  Transmission Date: 20120608
  Serious: Yes (Other)
  Sender: FDA-Public Use
  Company Number: PHEH2011US012244

PATIENT
  Age: 69 Year
  Sex: Male

DRUGS (6)
  1. TRIAMTERENE (TRIAMTERENE) [Concomitant]
  2. GLEEVEC [Suspect]
  3. PRESERVISION (MINERALS NOS, VITAMINS NOS) [Concomitant]
  4. MULTIVITAMIN ^LAPPE^ (VITAMINS NOS) [Concomitant]
  5. TASIGNA [Suspect]
     Dosage: 600 MG, BID
     Dates: start: 20111126
  6. FIBROML (LACTOBACILLUS BULGARICUS, STREPTOCOCCUS THERMOPHILUS) [Concomitant]

REACTIONS (3)
  - ABDOMINAL DISCOMFORT [None]
  - PANCREATITIS [None]
  - ABDOMINAL PAIN [None]
